FAERS Safety Report 17184027 (Version 1)
Quarter: 2019Q4

REPORT INFORMATION
  Report Type: Spontaneous
  Country: US (occurrence: US)
  Receive Date: 20191220
  Receipt Date: 20191220
  Transmission Date: 20200122
  Serious: Yes (Death)
  Sender: FDA-Public Use
  Company Number: US-BAYER-2019-225461

PATIENT
  Sex: Female

DRUGS (1)
  1. VITRAKVI [Suspect]
     Active Substance: LAROTRECTINIB
     Indication: COLON CANCER
     Dosage: 100 MG, BID
     Route: 048
     Dates: start: 20191121, end: 201911

REACTIONS (2)
  - Death [Fatal]
  - Hypersomnia [None]

NARRATIVE: CASE EVENT DATE: 201911
